FAERS Safety Report 11768356 (Version 1)
Quarter: 2015Q4

REPORT INFORMATION
  Report Type: Spontaneous
  Country: FR (occurrence: FR)
  Receive Date: 20151123
  Receipt Date: 20151123
  Transmission Date: 20160304
  Serious: Yes (Hospitalization)
  Sender: FDA-Public Use
  Company Number: FR-PFIZER INC-2015401926

PATIENT
  Age: 50 Year
  Sex: Female

DRUGS (3)
  1. XARELTO [Suspect]
     Active Substance: RIVAROXABAN
     Indication: ARRHYTHMIA
     Dosage: 1 DF, 2X/DAY
     Route: 048
     Dates: start: 20151006, end: 20151007
  2. KENZEN [Suspect]
     Active Substance: CANDESARTAN
     Indication: ARRHYTHMIA
     Dosage: 1 DF, 2X/DAY
     Route: 048
     Dates: start: 20151006, end: 20151007
  3. CORDARONE [Suspect]
     Active Substance: AMIODARONE HYDROCHLORIDE
     Indication: ARRHYTHMIA
     Dosage: 1 DF, 2X/DAY
     Route: 048
     Dates: start: 20151006, end: 20151007

REACTIONS (6)
  - Dyspnoea [Recovered/Resolved]
  - Rash [Recovered/Resolved]
  - Feeling abnormal [Recovered/Resolved]
  - Malaise [Recovered/Resolved]
  - Choking sensation [Recovered/Resolved]
  - Hot flush [Recovered/Resolved]

NARRATIVE: CASE EVENT DATE: 20151007
